FAERS Safety Report 5821896-2 (Version None)
Quarter: 2008Q3

REPORT INFORMATION
  Report Type: 
  Country: None (occurrence: None)
  Receive Date: 20080724
  Receipt Date: 20080710
  Transmission Date: 20090109
  Serious: Yes (Hospitalization)
  Sender: FDA-Public Use
  Company Number: JP-ELI_LILLY_AND_COMPANY-JP200807002714

PATIENT
  Age: 65 Year
  Sex: Female
  Weight: 53.8 kg

DRUGS (5)
  1. HUMALOG [Suspect]
     Indication: TYPE 2 DIABETES MELLITUS
     Dosage: 12 U, EACH MORNING
     Route: 058
     Dates: start: 20080301
  2. HUMALOG [Suspect]
     Dosage: 10 U, DAILY (1/D)
     Route: 058
     Dates: start: 20080301
  3. HUMALOG [Suspect]
     Dosage: 12 U, EACH EVENING
     Route: 058
     Dates: start: 20080301
  4. CANDESARTAN CILEXETIL [Concomitant]
     Indication: HYPERTENSION
     Dosage: 80 MG, DAILY (1/D)
     Route: 048
     Dates: start: 20080323
  5. LASIX [Concomitant]
     Indication: RENAL FAILURE CHRONIC
     Dosage: 40 MG, DAILY (1/D)
     Route: 048
     Dates: start: 20080323

REACTIONS (1)
  - DRUG HYPERSENSITIVITY [None]
